FAERS Safety Report 14514202 (Version 2)
Quarter: 2018Q1

REPORT INFORMATION
  Report Type: Report from Study
  Country: US (occurrence: US)
  Receive Date: 20180209
  Receipt Date: 20180316
  Transmission Date: 20180509
  Serious: Yes (Death, Hospitalization, Other)
  Sender: FDA-Public Use
  Company Number: PHEH2018US005059

PATIENT
  Age: 87 Year
  Sex: Male

DRUGS (1)
  1. ENTRESTO [Suspect]
     Active Substance: SACUBITRIL\VALSARTAN
     Indication: EJECTION FRACTION DECREASED
     Dosage: 1 DF (SACUBITRIL 97/VALSARTAN 103)
     Route: 048
     Dates: start: 20171107, end: 20180110

REACTIONS (8)
  - Arrhythmia [Fatal]
  - Bradyarrhythmia [Unknown]
  - Sudden death [Fatal]
  - Chronic kidney disease [Unknown]
  - Renal impairment [Unknown]
  - Diastolic dysfunction [Unknown]
  - Systolic dysfunction [Unknown]
  - Ventricular tachycardia [Unknown]

NARRATIVE: CASE EVENT DATE: 20180119
